FAERS Safety Report 7655853-0 (Version None)
Quarter: 2011Q3

REPORT INFORMATION
  Report Type: 
  Country: None (occurrence: None)
  Receive Date: 20110729
  Receipt Date: 20110715
  Transmission Date: 20111222
  Serious: Yes (Other)
  Sender: FDA-Public Use
  Company Number: MC201100323

PATIENT
  Age: 64 Year
  Sex: Female
  Weight: 86 kg

DRUGS (7)
  1. ANGIOMAX [Suspect]
     Indication: PERCUTANEOUS CORONARY INTERVENTION
     Dosage: BOLUS
     Route: 040
     Dates: start: 20110705, end: 20110705
  2. ANGIOMAX [Suspect]
     Indication: ACUTE MYOCARDIAL INFARCTION
     Dosage: BOLUS
     Route: 040
     Dates: start: 20110705, end: 20110705
  3. ANGIOMAX [Suspect]
     Dosage: ADMINISTERED FOR SECOND CASE
     Dates: start: 20110705
  4. PLAVIX [Concomitant]
  5. ANGIOMAX [Suspect]
     Indication: ACUTE MYOCARDIAL INFARCTION
     Dosage: INFUSION
     Dates: start: 20110705, end: 20110705
  6. ANGIOMAX [Suspect]
     Indication: PERCUTANEOUS CORONARY INTERVENTION
     Dosage: INFUSION
     Dates: start: 20110705, end: 20110705
  7. ASPIRIN [Concomitant]

REACTIONS (4)
  - HYPERHIDROSIS [None]
  - THROMBOSIS IN DEVICE [None]
  - HYPERTENSION [None]
  - CORONARY ARTERY OCCLUSION [None]
